FAERS Safety Report 24283925 (Version 1)
Quarter: 2024Q3

REPORT INFORMATION
  Report Type: Spontaneous
  Country: ES (occurrence: ES)
  Receive Date: 20240905
  Receipt Date: 20240905
  Transmission Date: 20241017
  Serious: Yes (Hospitalization, Other)
  Sender: AUROBINDO
  Company Number: ES-AEMPS-1561632

PATIENT
  Age: 80 Year
  Sex: Female

DRUGS (4)
  1. FUROSEMIDE [Suspect]
     Active Substance: FUROSEMIDE
     Indication: Product used for unknown indication
     Dosage: UNK (SINGLE DOSE)
     Route: 048
     Dates: start: 20240402, end: 20240402
  2. LOSARTAN POTASSIUM [Concomitant]
     Active Substance: LOSARTAN POTASSIUM
     Indication: Product used for unknown indication
     Dosage: UNK UNK,  (1 EVERY 24 HOURS)
     Route: 048
     Dates: start: 20240321
  3. METFORMIN HYDROCHLORIDE [Concomitant]
     Active Substance: METFORMIN HYDROCHLORIDE
     Indication: Product used for unknown indication
     Dosage: UNK UNK, TWO TIMES A DAY (1 EVERY 12 HOURS)
     Route: 048
     Dates: start: 20150724
  4. MEDEBIOTIN [Concomitant]
     Indication: Product used for unknown indication
     Dosage: UNK UNK, ONCE A DAY (1 EVERY 24 HOURS)
     Route: 048
     Dates: start: 20221215

REACTIONS (1)
  - Syncope [Recovered/Resolved]

NARRATIVE: CASE EVENT DATE: 20240402
